FAERS Safety Report 21942794 (Version 3)
Quarter: 2023Q1

REPORT INFORMATION
  Report Type: Report from Study
  Country: FR (occurrence: FR)
  Receive Date: 20230202
  Receipt Date: 20230315
  Transmission Date: 20230417
  Serious: Yes (Other)
  Sender: FDA-Public Use
  Company Number: FR-002147023-NVSC2023FR020492

PATIENT
  Age: 28 Year
  Sex: Female

DRUGS (2)
  1. LUTETIUM OXODOTREOTIDE LU-177 [Suspect]
     Active Substance: LUTETIUM OXODOTREOTIDE LU-177
     Indication: Small cell carcinoma
     Dosage: 7515 MBQ, ONCE/SINGLE (CYCLE 1) (LAST RECEIVED DOSE ON 07 DEC 2022))
     Route: 065
     Dates: start: 20221207
  2. LUTETIUM OXODOTREOTIDE LU-177 [Suspect]
     Active Substance: LUTETIUM OXODOTREOTIDE LU-177
     Indication: Malignant pituitary tumour

REACTIONS (2)
  - Haemorrhage [Unknown]
  - Headache [Unknown]

NARRATIVE: CASE EVENT DATE: 20221217
